FAERS Safety Report 26111366 (Version 1)
Quarter: 2025Q4

REPORT INFORMATION
  Report Type: Spontaneous
  Country: US (occurrence: US)
  Receive Date: 20251202
  Receipt Date: 20251202
  Transmission Date: 20260118
  Serious: Yes (Hospitalization, Other)
  Sender: CIPLA
  Company Number: US-CIPLA LTD.-2025US15201

PATIENT

DRUGS (1)
  1. TESTOSTERONE [Suspect]
     Active Substance: TESTOSTERONE
     Indication: Hypogonadism
     Dosage: UNK
     Route: 030

REACTIONS (8)
  - Haemorrhage intracranial [Unknown]
  - Renal infarct [Unknown]
  - Ischaemic cardiomyopathy [Unknown]
  - Cardiac ventricular thrombosis [Unknown]
  - Peripheral ischaemia [Unknown]
  - Polycythaemia [Unknown]
  - Acute myocardial infarction [Unknown]
  - Cerebrovascular accident [Unknown]
